FAERS Safety Report 10342064 (Version 1)
Quarter: 2014Q3

REPORT INFORMATION
  Report Type: Spontaneous
  Country: TR (occurrence: TR)
  Receive Date: 20140725
  Receipt Date: 20140725
  Transmission Date: 20150326
  Serious: Yes (Hospitalization)
  Sender: FDA-Public Use
  Company Number: TR-NOVOPROD-416802

PATIENT
  Sex: Male
  Weight: 3 kg

DRUGS (2)
  1. NOVORAPID [Suspect]
     Active Substance: INSULIN ASPART
     Indication: GESTATIONAL DIABETES
     Dosage: 21 U, QD
     Route: 064
     Dates: start: 20140506, end: 20140628
  2. LEVEMIR [Suspect]
     Active Substance: INSULIN DETEMIR
     Indication: GESTATIONAL DIABETES
     Dosage: 7 U, QD
     Route: 064
     Dates: start: 20140506, end: 20140628

REACTIONS (3)
  - Neonatal respiratory distress syndrome [Unknown]
  - Neonatal aspiration [Unknown]
  - Foetal exposure during pregnancy [Recovered/Resolved]

NARRATIVE: CASE EVENT DATE: 20140506
